FAERS Safety Report 13070611 (Version 4)
Quarter: 2017Q3

REPORT INFORMATION
  Report Type: Report from Study
  Country: US (occurrence: US)
  Receive Date: 20161229
  Receipt Date: 20170822
  Transmission Date: 20171127
  Serious: Yes (Other)
  Sender: FDA-Public Use
  Company Number: PHHY2016US032207

PATIENT
  Age: 34 Year
  Sex: Male

DRUGS (1)
  1. GILENYA [Suspect]
     Active Substance: FINGOLIMOD HYDROCHLORIDE
     Indication: MULTIPLE SCLEROSIS
     Dosage: UNK, QD
     Route: 048

REACTIONS (5)
  - White blood cell count increased [Unknown]
  - Alanine aminotransferase increased [Unknown]
  - Lymphocyte count decreased [Unknown]
  - Benign neoplasm [Unknown]
  - Fall [Unknown]

NARRATIVE: CASE EVENT DATE: 20160203
